FAERS Safety Report 8979491 (Version 2)
Quarter: 2012Q4

REPORT INFORMATION
  Report Type: Report from Study
  Country: US (occurrence: US)
  Receive Date: 20121221
  Receipt Date: 20121231
  Transmission Date: 20130627
  Serious: Yes (Hospitalization)
  Sender: FDA-Public Use
  Company Number: US-ABBOTT-12P-163-1021724-00

PATIENT
  Age: 43 Year
  Sex: Male
  Weight: 56.75 kg

DRUGS (6)
  1. HUMIRA [Suspect]
     Indication: CROHN^S DISEASE
     Route: 058
     Dates: start: 201209, end: 20121212
  2. ENALAPRIL [Concomitant]
     Indication: HYPERTENSION
     Route: 048
  3. IMURAN [Concomitant]
     Indication: CROHN^S DISEASE
     Dosage: 50 mg daily
  4. FOLIC ACID [Concomitant]
     Indication: VITAMIN SUPPLEMENTATION
     Dosage: 1 MG DAILY
  5. VERAPAMIL [Concomitant]
     Indication: HYPERTENSION
     Dosage: 10 MG DAILY
  6. TRAMADOL [Concomitant]
     Indication: PAIN

REACTIONS (2)
  - Crohn^s disease [Recovered/Resolved]
  - Appendicectomy [Unknown]
